FAERS Safety Report 13921594 (Version 1)
Quarter: 2017Q3

REPORT INFORMATION
  Report Type: Other
  Country: DE (occurrence: DE)
  Receive Date: 20170830
  Receipt Date: 20170830
  Transmission Date: 20171127
  Serious: Yes (Other)
  Sender: FDA-Public Use
  Company Number: DE-CELLTRION INC.-2016DE005247

PATIENT

DRUGS (5)
  1. REMSIMA [Suspect]
     Active Substance: INFLIXIMAB
     Indication: CROHN^S DISEASE
     Dosage: 5 MG/KG, UNK
     Route: 042
     Dates: start: 20160317, end: 20160317
  2. REMSIMA [Suspect]
     Active Substance: INFLIXIMAB
     Dosage: 5 MG/KG; UNK
     Route: 042
     Dates: start: 20160331, end: 20160331
  3. DECORTIN [Concomitant]
     Active Substance: PREDNISONE
     Dosage: UNK, UNK
  4. REMSIMA [Suspect]
     Active Substance: INFLIXIMAB
     Dosage: 5 MG/KG; UNK
     Route: 042
     Dates: start: 20160428, end: 20160428
  5. AZA-Q [Concomitant]
     Dosage: UNK, UNK

REACTIONS (2)
  - Cardiovascular disorder [Recovered/Resolved]
  - Fatigue [Recovered/Resolved]

NARRATIVE: CASE EVENT DATE: 20160331
